FAERS Safety Report 10251557 (Version 1)
Quarter: 2014Q2

REPORT INFORMATION
  Report Type: Spontaneous
  Country: CA (occurrence: CA)
  Receive Date: 20140623
  Receipt Date: 20140623
  Transmission Date: 20141212
  Serious: Yes (Hospitalization)
  Sender: FDA-Public Use
  Company Number: CA-AMGEN-CANSP2014046070

PATIENT
  Age: 67 Year
  Sex: Female

DRUGS (9)
  1. ENBREL [Suspect]
     Indication: RHEUMATOID ARTHRITIS
     Dosage: 50 MG, UNK
     Route: 065
     Dates: start: 20121223
  2. ASPIRIN [Concomitant]
     Dosage: 81 MG, UNK
  3. PANTOLOC                           /01263204/ [Concomitant]
     Dosage: 40 MG, UNK
  4. SYNTHROID [Concomitant]
     Dosage: 0.125 MG, UNK
  5. CRESTOR [Concomitant]
     Dosage: 20 MG, UNK
  6. METOPROLOL [Concomitant]
     Dosage: 25 MG, UNK
  7. MTX                                /00113801/ [Concomitant]
     Dosage: 2.5 MG, QWK
  8. FOLIC ACID [Concomitant]
     Dosage: UNK
  9. VITAMIN D                          /00107901/ [Concomitant]
     Dosage: UNK

REACTIONS (2)
  - Coronary artery occlusion [Recovering/Resolving]
  - Asthenia [Recovering/Resolving]
